APPROVED DRUG PRODUCT: OXYCODONE HYDROCHLORIDE
Active Ingredient: OXYCODONE HYDROCHLORIDE
Strength: 15MG
Dosage Form/Route: TABLET;ORAL
Application: A204021 | Product #003
Applicant: NOVEL LABORATORIES INC
Approved: Jun 12, 2017 | RLD: No | RS: No | Type: DISCN